FAERS Safety Report 9941460 (Version 2)
Quarter: 2014Q1

REPORT INFORMATION
  Report Type: Report from Study
  Country: US (occurrence: US)
  Receive Date: 20140303
  Receipt Date: 20140303
  Transmission Date: 20141002
  Serious: No
  Sender: FDA-Public Use
  Company Number: US-ABBVIE-12P-163-1019154-00

PATIENT
  Age: 35 Year
  Sex: Female

DRUGS (5)
  1. HUMIRA [Suspect]
     Indication: CROHN^S DISEASE
     Dates: start: 20121030
  2. CONCERTA [Concomitant]
     Indication: ATTENTION DEFICIT/HYPERACTIVITY DISORDER
  3. NEURONTIN [Concomitant]
     Indication: AFFECTIVE DISORDER
     Dosage: UP TO 5 TIMES, 1 IN 1 D, AS NEEDED
  4. IMURAN [Concomitant]
     Indication: PRODUCT USED FOR UNKNOWN INDICATION
  5. RITALIN [Concomitant]
     Indication: PRODUCT USED FOR UNKNOWN INDICATION

REACTIONS (7)
  - Swelling [Not Recovered/Not Resolved]
  - Dry eye [Not Recovered/Not Resolved]
  - Injection site reaction [Not Recovered/Not Resolved]
  - Swelling [Not Recovered/Not Resolved]
  - Feeling hot [Not Recovered/Not Resolved]
  - Therapeutic response unexpected [Not Recovered/Not Resolved]
  - Abdominal distension [Not Recovered/Not Resolved]
